FAERS Safety Report 20842436 (Version 6)
Quarter: 2022Q3

REPORT INFORMATION
  Report Type: Spontaneous
  Country: JP (occurrence: JP)
  Receive Date: 20220518
  Receipt Date: 20220824
  Transmission Date: 20221027
  Serious: Yes (Other)
  Sender: FDA-Public Use
  Company Number: JP-BRISTOL-MYERS SQUIBB COMPANY-BMS-2022-016029

PATIENT
  Age: 7 Decade
  Sex: Male

DRUGS (21)
  1. YERVOY [Suspect]
     Active Substance: IPILIMUMAB
     Indication: Non-small cell lung cancer recurrent
     Dosage: 72 MG, SINGLE
     Route: 041
     Dates: start: 20220120, end: 20220120
  2. YERVOY [Suspect]
     Active Substance: IPILIMUMAB
     Indication: Non-small cell lung cancer
     Dosage: UNK
     Route: 041
  3. YERVOY [Suspect]
     Active Substance: IPILIMUMAB
     Route: 041
  4. OPDIVO [Suspect]
     Active Substance: NIVOLUMAB
     Indication: Non-small cell lung cancer recurrent
     Route: 041
     Dates: start: 20220120, end: 20220120
  5. OPDIVO [Suspect]
     Active Substance: NIVOLUMAB
     Route: 041
  6. EMEND [Suspect]
     Active Substance: APREPITANT
     Indication: Prophylaxis of nausea and vomiting
     Dosage: 125 MG, EVERYDAY
     Route: 048
     Dates: start: 20220120, end: 20220120
  7. EMEND [Suspect]
     Active Substance: APREPITANT
     Dosage: 80 MG, EVERYDAY
     Route: 048
     Dates: start: 20220121, end: 20220122
  8. ALIMTA [Concomitant]
     Active Substance: PEMETREXED DISODIUM
     Indication: Non-small cell lung cancer recurrent
     Dosage: 930 MG
     Route: 041
     Dates: start: 20220120, end: 20220210
  9. ALIMTA [Concomitant]
     Active Substance: PEMETREXED DISODIUM
     Indication: Product used for unknown indication
  10. PRIMODIL [AMLODIPINE] [Concomitant]
     Dosage: 5 MG, EVERYDAY
     Route: 048
  11. PRIMODIL [AMLODIPINE] [Concomitant]
     Indication: Product used for unknown indication
     Dosage: 5 MG EVERY DAY
     Route: 048
  12. DIHYDROCODEINE PHOSPHATE [Concomitant]
     Active Substance: DIHYDROCODEINE PHOSPHATE
     Dosage: 1 G, Q12H
     Route: 065
     Dates: start: 20211227
  13. DIHYDROCODEINE PHOSPHATE [Concomitant]
     Active Substance: DIHYDROCODEINE PHOSPHATE
     Indication: Product used for unknown indication
  14. MAGNESIUM OXIDE [Concomitant]
     Active Substance: MAGNESIUM OXIDE
     Dosage: UNK
     Route: 065
  15. MAGNESIUM OXIDE [Concomitant]
     Active Substance: MAGNESIUM OXIDE
     Indication: Product used for unknown indication
     Route: 065
  16. MAGNESIUM OXIDE [Concomitant]
     Active Substance: MAGNESIUM OXIDE
     Dosage: UNK
     Route: 065
  17. VITAMINS [Concomitant]
     Active Substance: VITAMINS
     Indication: Product used for unknown indication
     Route: 065
     Dates: start: 20220119
  18. CARBOPLATIN [Concomitant]
     Active Substance: CARBOPLATIN
     Indication: Non-small cell lung cancer
     Route: 041
     Dates: start: 20220120, end: 20220210
  19. PEMETREXED [Concomitant]
     Active Substance: PEMETREXED
     Indication: Non-small cell lung cancer
     Route: 041
     Dates: start: 20220120, end: 20220210
  20. DECADRON [Concomitant]
     Active Substance: DEXAMETHASONE
     Indication: Product used for unknown indication
     Dosage: 4 MG EVERY DAY
     Route: 065
     Dates: start: 20220121, end: 20220122
  21. DEXTROMETHORPHAN HYDROBROMIDE [Concomitant]
     Active Substance: DEXTROMETHORPHAN HYDROBROMIDE
     Indication: Product used for unknown indication
     Dosage: 2 DF, Q12H
     Route: 048
     Dates: start: 20220126

REACTIONS (1)
  - Liver disorder [Recovering/Resolving]

NARRATIVE: CASE EVENT DATE: 20220127
